FAERS Safety Report 9001511 (Version 2)
Quarter: 2013Q1

REPORT INFORMATION
  Report Type: Spontaneous
  Country: US (occurrence: US)
  Receive Date: 20130107
  Receipt Date: 20130122
  Transmission Date: 20140127
  Serious: Yes (Death)
  Sender: FDA-Public Use
  Company Number: US-PFIZER INC-2013004413

PATIENT
  Age: 46 Year
  Sex: Male

DRUGS (5)
  1. IBUPROFEN [Suspect]
     Dosage: UNK
     Route: 048
  2. HYDROXYZINE PAMOATE [Suspect]
     Dosage: UNK
     Route: 048
  3. CYCLOBENZAPRINE [Suspect]
     Dosage: UNK
     Route: 048
  4. ESCITALOPRAM [Suspect]
     Dosage: UNK
     Route: 048
  5. VALPROIC ACID [Suspect]
     Dosage: UNK
     Route: 048

REACTIONS (1)
  - Completed suicide [Fatal]
